FAERS Safety Report 14539745 (Version 1)
Quarter: 2018Q1

REPORT INFORMATION
  Report Type: Spontaneous
  Country: BR (occurrence: BR)
  Receive Date: 20180216
  Receipt Date: 20180216
  Transmission Date: 20180509
  Serious: Yes (Other)
  Sender: FDA-Public Use
  Company Number: PHHY2018BR016633

PATIENT
  Age: 10 Year
  Sex: Male
  Weight: 19.5 kg

DRUGS (2)
  1. DEPAKOTE [Concomitant]
     Active Substance: DIVALPROEX SODIUM
     Indication: AGITATION
     Dosage: 4 DF, QD
     Route: 048
     Dates: start: 2014
  2. TRILEPTAL [Suspect]
     Active Substance: OXCARBAZEPINE
     Indication: EPILEPSY
     Dosage: 6 ML, BID (6 ML IN THE MORNING AND 6 ML IN NIGHT)
     Route: 048
     Dates: start: 2014

REACTIONS (2)
  - Epilepsy [Recovered/Resolved]
  - Drug level decreased [Recovered/Resolved]

NARRATIVE: CASE EVENT DATE: 20180101
